FAERS Safety Report 6927499-0 (Version None)
Quarter: 2010Q3

REPORT INFORMATION
  Report Type: 
  Country: None (occurrence: None)
  Receive Date: 20100812
  Receipt Date: 20100803
  Transmission Date: 20110219
  Serious: Yes (Other)
  Sender: FDA-Public Use
  Company Number: 2010US003165

PATIENT

DRUGS (1)
  1. PROGRAF [Suspect]
     Indication: HEART AND LUNG TRANSPLANT

REACTIONS (1)
  - STATUS EPILEPTICUS [None]
